FAERS Safety Report 19439471 (Version 12)
Quarter: 2023Q2

REPORT INFORMATION
  Report Type: Spontaneous
  Country: CA (occurrence: CA)
  Receive Date: 20210618
  Receipt Date: 20230529
  Transmission Date: 20230722
  Serious: Yes (Hospitalization)
  Sender: FDA-Public Use
  Company Number: CA-CELLTRION INC.-2020CA023085

PATIENT

DRUGS (16)
  1. INFLECTRA [Suspect]
     Active Substance: INFLIXIMAB-DYYB
     Indication: Colitis ulcerative
     Dosage: 300 MG (EVERY 8 WEEKS)
     Route: 042
     Dates: start: 20200307
  2. INFLECTRA [Suspect]
     Active Substance: INFLIXIMAB-DYYB
     Dosage: 300 MG (EVERY 8 WEEKS)
     Route: 042
     Dates: start: 20200605
  3. INFLECTRA [Suspect]
     Active Substance: INFLIXIMAB-DYYB
     Dosage: 300 MG (EVERY 8 WEEKS)
     Route: 042
     Dates: start: 20200729
  4. INFLECTRA [Suspect]
     Active Substance: INFLIXIMAB-DYYB
     Dosage: 300 MG (EVERY 8 WEEKS)
     Route: 042
     Dates: start: 20201026
  5. INFLECTRA [Suspect]
     Active Substance: INFLIXIMAB-DYYB
     Dosage: 300 MG (EVERY 8 WEEKS)
     Route: 042
     Dates: start: 20210201
  6. INFLECTRA [Suspect]
     Active Substance: INFLIXIMAB-DYYB
     Dosage: 300 MG (EVERY 8 WEEKS)
     Route: 041
     Dates: start: 20210331
  7. INFLECTRA [Suspect]
     Active Substance: INFLIXIMAB-DYYB
     Dosage: 300 MG (EVERY 8 WEEKS)
     Route: 041
     Dates: start: 20210612
  8. INFLECTRA [Suspect]
     Active Substance: INFLIXIMAB-DYYB
     Dosage: 300 MG (EVERY 8 WEEKS)
     Route: 041
     Dates: start: 20211002
  9. INFLECTRA [Suspect]
     Active Substance: INFLIXIMAB-DYYB
     Dosage: 300 MG (EVERY 8 WEEKS)
     Route: 041
     Dates: start: 20211209
  10. INFLECTRA [Suspect]
     Active Substance: INFLIXIMAB-DYYB
     Dosage: 300 MG, (EVERY 8 WEEKS)
     Route: 041
     Dates: start: 20220201
  11. INFLECTRA [Suspect]
     Active Substance: INFLIXIMAB-DYYB
     Dosage: 300 MG, (EVERY 8 WEEKS)
     Route: 042
     Dates: start: 20220326
  12. INFLECTRA [Suspect]
     Active Substance: INFLIXIMAB-DYYB
     Dosage: 300 MG, (EVERY 8 WEEKS)
     Route: 042
     Dates: start: 20220606
  13. INFLECTRA [Suspect]
     Active Substance: INFLIXIMAB-DYYB
     Dosage: 300 MG, (EVERY 8 WEEKS)
     Route: 042
     Dates: start: 20220924
  14. INFLECTRA [Suspect]
     Active Substance: INFLIXIMAB-DYYB
     Dosage: 300 MG, (EVERY 8 WEEKS)
     Route: 042
     Dates: start: 20230120
  15. INFLECTRA [Suspect]
     Active Substance: INFLIXIMAB-DYYB
     Dosage: 300MG EVERY 4 WEEKS
     Route: 042
     Dates: start: 20230322
  16. INFLECTRA [Suspect]
     Active Substance: INFLIXIMAB-DYYB
     Dosage: 300MG EVERY 4 WEEKS
     Route: 042
     Dates: start: 20230520

REACTIONS (8)
  - Condition aggravated [Recovered/Resolved]
  - Pain [Not Recovered/Not Resolved]
  - Proctalgia [Not Recovered/Not Resolved]
  - Diarrhoea [Not Recovered/Not Resolved]
  - Off label use [Unknown]
  - Inappropriate schedule of product administration [Unknown]
  - Mental disorder [Not Recovered/Not Resolved]
  - Loss of personal independence in daily activities [Not Recovered/Not Resolved]

NARRATIVE: CASE EVENT DATE: 20200605
